FAERS Safety Report 14629970 (Version 1)
Quarter: 2018Q1

REPORT INFORMATION
  Report Type: Spontaneous
  Country: US (occurrence: US)
  Receive Date: 20180313
  Receipt Date: 20180313
  Transmission Date: 20180509
  Serious: No
  Sender: FDA-Public Use
  Company Number: US-BAYER-2018-045030

PATIENT
  Age: 59 Year
  Sex: Female
  Weight: 63.99 kg

DRUGS (1)
  1. MIRALAX [Suspect]
     Active Substance: POLYETHYLENE GLYCOL 3350
     Route: 048

REACTIONS (5)
  - Product use issue [Unknown]
  - Dysgeusia [Recovered/Resolved]
  - Product taste abnormal [Unknown]
  - Poor quality drug administered [Unknown]
  - Lip exfoliation [Recovered/Resolved]

NARRATIVE: CASE EVENT DATE: 20180303
